FAERS Safety Report 11253098 (Version 4)
Quarter: 2015Q4

REPORT INFORMATION
  Report Type: Report from Study
  Country: US (occurrence: US)
  Receive Date: 20150709
  Receipt Date: 20151030
  Transmission Date: 20160304
  Serious: Yes (Life-Threatening, Other)
  Sender: FDA-Public Use
  Company Number: PHEH2015US009880

PATIENT
  Sex: Male
  Weight: 88.44 kg

DRUGS (1)
  1. GILENYA [Suspect]
     Active Substance: FINGOLIMOD HYDROCHLORIDE
     Indication: MULTIPLE SCLEROSIS
     Dosage: 0.5 MG, QD
     Route: 048
     Dates: start: 20150424

REACTIONS (12)
  - Nervous system disorder [Unknown]
  - Muscle spasms [Not Recovered/Not Resolved]
  - Malaise [Not Recovered/Not Resolved]
  - Vision blurred [Not Recovered/Not Resolved]
  - Eye disorder [Unknown]
  - Multiple sclerosis relapse [Not Recovered/Not Resolved]
  - Body temperature increased [Unknown]
  - Back pain [Not Recovered/Not Resolved]
  - Hyperhidrosis [Unknown]
  - Visual impairment [Not Recovered/Not Resolved]
  - Central nervous system lesion [Not Recovered/Not Resolved]
  - Vitreous floaters [Unknown]
